FAERS Safety Report 16757678 (Version 1)
Quarter: 2019Q3

REPORT INFORMATION
  Report Type: Spontaneous
  Country: FR (occurrence: FR)
  Receive Date: 20190830
  Receipt Date: 20190830
  Transmission Date: 20191005
  Serious: Yes (Life-Threatening, Hospitalization, Other)
  Sender: FDA-Public Use
  Company Number: FR-SUN PHARMACEUTICAL INDUSTRIES LTD-2019R1-218723

PATIENT
  Age: 24 Year
  Sex: Female
  Weight: 49 kg

DRUGS (1)
  1. PARACETAMOL [Suspect]
     Active Substance: ACETAMINOPHEN
     Indication: PRODUCT USED FOR UNKNOWN INDICATION
     Dosage: 50 GRAM, UNK
     Route: 048
     Dates: start: 20160625, end: 20160625

REACTIONS (4)
  - Analgesic drug level increased [Recovered/Resolved]
  - Hepatocellular injury [Recovering/Resolving]
  - Hepatitis fulminant [Recovered/Resolved]
  - Coma [Recovered/Resolved]

NARRATIVE: CASE EVENT DATE: 20160625
